FAERS Safety Report 20940471 (Version 2)
Quarter: 2022Q2

REPORT INFORMATION
  Report Type: Spontaneous
  Country: US (occurrence: US)
  Receive Date: 20220609
  Receipt Date: 20220630
  Transmission Date: 20220720
  Serious: Yes (Other)
  Sender: FDA-Public Use
  Company Number: US-TEVA-2022-US-2043599

PATIENT
  Age: 31 Year
  Sex: Female

DRUGS (2)
  1. CISPLATIN [Suspect]
     Active Substance: CISPLATIN
     Indication: Breast cancer
     Route: 065
     Dates: start: 20190313
  2. ETOPOSIDE [Suspect]
     Active Substance: ETOPOSIDE
     Indication: Breast cancer
     Route: 065
     Dates: start: 20190313

REACTIONS (2)
  - Diarrhoea [Unknown]
  - Breast cellulitis [Unknown]

NARRATIVE: CASE EVENT DATE: 20190101
